FAERS Safety Report 18573791 (Version 1)
Quarter: 2020Q4

REPORT INFORMATION
  Report Type: Spontaneous
  Country: FR (occurrence: FR)
  Receive Date: 20201203
  Receipt Date: 20201203
  Transmission Date: 20210114
  Serious: Yes (Other)
  Sender: FDA-Public Use
  Company Number: FR-SUN PHARMACEUTICAL INDUSTRIES LTD-2020RR-269546

PATIENT
  Age: 30 Year
  Sex: Female
  Weight: 45 kg

DRUGS (4)
  1. FYREMADEL [Suspect]
     Active Substance: GANIRELIX ACETATE
     Indication: IN VITRO FERTILISATION
     Dosage: 1 DOSAGE FORM, DAILY
     Route: 058
     Dates: start: 20200917, end: 20200922
  2. DECAPEPTYL 0,1 MG, POUDRE ET SOLVANT POUR SOLUTION INJECTABLE (S.C.) [Suspect]
     Active Substance: TRIPTORELIN
     Indication: IN VITRO FERTILISATION
     Dosage: 2 DOSAGE FORM, IN TOTAL
     Route: 058
     Dates: start: 20200923
  3. UTROGESTAN 200 MG, CAPSULE MOLLE ORALE OU VAGINALE [Concomitant]
     Indication: PRODUCT USED FOR UNKNOWN INDICATION
     Dosage: UNK
     Route: 067
     Dates: start: 20200925
  4. GONAL-F [Suspect]
     Active Substance: FOLLITROPIN
     Indication: IN VITRO FERTILISATION
     Dosage: 125 INTERNATIONAL UNIT, DAILY
     Route: 058
     Dates: start: 20200912, end: 20200922

REACTIONS (2)
  - Ascites [Recovered/Resolved]
  - Ovarian hyperstimulation syndrome [Recovered/Resolved]

NARRATIVE: CASE EVENT DATE: 20200928
